FAERS Safety Report 4854423-7 (Version None)
Quarter: 2005Q4

REPORT INFORMATION
  Report Type: 
  Country: None (occurrence: None)
  Receive Date: 20051214
  Receipt Date: 20051214
  Transmission Date: 20060501
  Serious: Yes (Hospitalization, Other)
  Sender: FDA-Public Use
  Company Number: None

PATIENT
  Sex: Female
  Weight: 72.7 kg

DRUGS (4)
  1. DOXORUBICIN [Suspect]
     Indication: BREAST CANCER
     Dosage: SEE IMAGE
     Dates: start: 20051116, end: 20051116
  2. CYCLOPHOSPHAMIDE [Suspect]
     Dosage: SEE IMAGE
     Dates: end: 20051116
  3. PACLITAXEL [Suspect]
     Dosage: SEE IMAGE
  4. GEMCITABINE [Suspect]
     Dosage: SEE IMAGE

REACTIONS (2)
  - CATHETER RELATED COMPLICATION [None]
  - THROMBOSIS [None]
